FAERS Safety Report 15717384 (Version 1)
Quarter: 2018Q4

REPORT INFORMATION
  Report Type: Spontaneous
  Country: US (occurrence: US)
  Receive Date: 20181129
  Receipt Date: 20181129
  Transmission Date: 20190205
  Serious: No
  Sender: FDA-Public Use
  Company Number: None

PATIENT

DRUGS (2)
  1. GLIPIZIDE EXTENDED RELEASE 2.5MG TABLETS [Suspect]
     Active Substance: GLIPIZIDE
     Route: 048
  2. GLYBURIDE. [Suspect]
     Active Substance: GLYBURIDE

REACTIONS (5)
  - Blood glucose decreased [None]
  - Product dispensing error [None]
  - Product selection error [None]
  - Wrong product administered [None]
  - Adverse drug reaction [None]

NARRATIVE: CASE EVENT DATE: 2018
